FAERS Safety Report 6236287-2 (Version None)
Quarter: 2009Q2

REPORT INFORMATION
  Report Type: 
  Country: None (occurrence: None)
  Receive Date: 20090619
  Receipt Date: 20090608
  Transmission Date: 20091009
  Serious: Yes (Death, Hospitalization)
  Sender: FDA-Public Use
  Company Number: IE-PFIZER INC-2008065879

PATIENT
  Age: 58 Year

DRUGS (7)
  1. LIPITOR [Suspect]
     Dosage: 20 MG, UNK
     Route: 048
     Dates: start: 20010101
  2. FUCIDINE CAP [Interacting]
     Indication: LOCALISED INFECTION
     Route: 048
     Dates: start: 20080101
  3. INSULIN [Concomitant]
     Dosage: UNK
  4. ACETYLSALICYLIC ACID [Concomitant]
     Dosage: UNK
  5. BISOPROLOL [Concomitant]
     Dosage: UNK
  6. RAMIPRIL [Concomitant]
     Dosage: UNK
  7. AMITRIPTYLINE [Concomitant]
     Dosage: UNK

REACTIONS (3)
  - DRUG INTERACTION [None]
  - RENAL FAILURE ACUTE [None]
  - RHABDOMYOLYSIS [None]
